FAERS Safety Report 11717187 (Version 1)
Quarter: 2015Q4

REPORT INFORMATION
  Report Type: Other
  Country: US (occurrence: US)
  Receive Date: 20151109
  Receipt Date: 20151109
  Transmission Date: 20160304
  Serious: Yes (Hospitalization)
  Sender: FDA-Public Use
  Company Number: US-OSMOTICA_PHARMACEUTICAL_CORP-POI0573201500021

PATIENT
  Age: 92 Year
  Sex: Female

DRUGS (1)
  1. NIFEDIPINE EXTENDED-RELEASE TABLETS USP 90MG [Suspect]
     Active Substance: NIFEDIPINE
     Dates: start: 2014, end: 2014

REACTIONS (2)
  - Cardiac failure [Not Recovered/Not Resolved]
  - Product odour abnormal [None]

NARRATIVE: CASE EVENT DATE: 2014
